FAERS Safety Report 24930114 (Version 1)
Quarter: 2025Q1

REPORT INFORMATION
  Report Type: Spontaneous
  Country: BR (occurrence: BR)
  Receive Date: 20250205
  Receipt Date: 20250205
  Transmission Date: 20250408
  Serious: Yes (Death, Other)
  Sender: BIOMARIN
  Company Number: BR-BIOMARINAP-BR-2025-163566

PATIENT

DRUGS (1)
  1. NAGLAZYME [Suspect]
     Active Substance: GALSULFASE
     Indication: Mucopolysaccharidosis VI
     Route: 065

REACTIONS (2)
  - Septic shock [Fatal]
  - Pneumonia [Unknown]

NARRATIVE: CASE EVENT DATE: 20250122
